FAERS Safety Report 4503873-7 (Version None)
Quarter: 2004Q4

REPORT INFORMATION
  Report Type: 
  Country: None (occurrence: None)
  Receive Date: 20041115
  Receipt Date: 20041101
  Transmission Date: 20050328
  Serious: Yes (Other)
  Sender: FDA-Public Use
  Company Number: 2004090278

PATIENT
  Age: 55 Year
  Sex: Female

DRUGS (2)
  1. AZITHROMYCIN [Suspect]
     Indication: LARYNGOPHARYNGITIS
     Dosage: 500 MG, ORAL
     Route: 048
     Dates: start: 20041029, end: 20041029
  2. CIPROFLOXACIN HCL [Concomitant]

REACTIONS (6)
  - BLOOD PRESSURE INCREASED [None]
  - FEELING ABNORMAL [None]
  - HEADACHE [None]
  - NAUSEA [None]
  - PROTEIN URINE PRESENT [None]
  - VOMITING [None]
